FAERS Safety Report 6100260-5 (Version None)
Quarter: 2009Q1

REPORT INFORMATION
  Report Type: 
  Country: None (occurrence: None)
  Receive Date: 20090303
  Receipt Date: 20090218
  Transmission Date: 20090719
  Serious: Yes (Other)
  Sender: FDA-Public Use
  Company Number: US-PFIZER INC-2009175878

PATIENT
  Sex: Male

DRUGS (2)
  1. ZOLOFT [Suspect]
     Dates: start: 20080901
  2. ARICEPT [Concomitant]

REACTIONS (2)
  - LETHARGY [None]
  - SOMNOLENCE [None]
